FAERS Safety Report 9053473 (Version 1)
Quarter: 2013Q1

REPORT INFORMATION
  Report Type: Spontaneous
  Country: BR (occurrence: BR)
  Receive Date: 20130208
  Receipt Date: 20130208
  Transmission Date: 20140127
  Serious: Yes (Hospitalization, Other)
  Sender: FDA-Public Use
  Company Number: PHHY2013BR010301

PATIENT
  Age: 81 Year
  Sex: Female

DRUGS (2)
  1. DIOVAN [Suspect]
     Indication: HYPERTENSION
     Dosage: 1 DF, (160 MG) DAILY
     Route: 048
  2. DIOVAN [Suspect]
     Dosage: 2 DF, (80 MG) DAILY
     Route: 048

REACTIONS (3)
  - Pancreatic neoplasm [Unknown]
  - Pulmonary mass [Unknown]
  - Hypertension [Unknown]
